FAERS Safety Report 21722573 (Version 6)
Quarter: 2023Q1

REPORT INFORMATION
  Report Type: Spontaneous
  Country: US (occurrence: US)
  Receive Date: 20221213
  Receipt Date: 20230331
  Transmission Date: 20230418
  Serious: No
  Sender: FDA-Public Use
  Company Number: US-PFIZER INC-202201364555

PATIENT
  Age: 76 Year
  Sex: Female
  Weight: 67.12 kg

DRUGS (1)
  1. PAXLOVID [Suspect]
     Active Substance: NIRMATRELVIR\RITONAVIR
     Indication: COVID-19 treatment
     Dosage: [PF-07321332 300 MG]/[RITONAVIR 100 MG]; 2X/DAY
     Route: 048
     Dates: start: 20221203, end: 20221206

REACTIONS (6)
  - Diarrhoea [Recovered/Resolved]
  - Abdominal pain [Recovered/Resolved]
  - Decreased appetite [Recovered/Resolved]
  - Ocular icterus [Recovered/Resolved]
  - Abdominal pain lower [Recovered/Resolved]
  - Intercepted product prescribing error [Unknown]

NARRATIVE: CASE EVENT DATE: 20221203
